FAERS Safety Report 7818465-1 (Version None)
Quarter: 2011Q4

REPORT INFORMATION
  Report Type: 
  Country: None (occurrence: None)
  Receive Date: 20111017
  Receipt Date: 20101109
  Transmission Date: 20120403
  Serious: No
  Sender: FDA-Public Use
  Company Number: US-BAYER-201041391NA

PATIENT
  Age: 58 Year
  Sex: Female

DRUGS (1)
  1. MAGNEVIST [Suspect]
     Indication: IMAGING PROCEDURE
     Dosage: UNK
     Route: 042
     Dates: start: 20101107, end: 20101107

REACTIONS (6)
  - SNEEZING [None]
  - FEELING HOT [None]
  - COUGH [None]
  - DYSPNOEA [None]
  - NAUSEA [None]
  - UNEVALUABLE EVENT [None]
